FAERS Safety Report 9398753 (Version 2)
Quarter: 2013Q4

REPORT INFORMATION
  Report Type: Spontaneous
  Country: GB (occurrence: GB)
  Receive Date: 20130712
  Receipt Date: 20131030
  Transmission Date: 20140711
  Serious: Yes (Other)
  Sender: FDA-Public Use
  Company Number: GB-009507513-1307GBR003415

PATIENT
  Age: 34 Year
  Sex: Male
  Weight: 65.2 kg

DRUGS (3)
  1. MIRTAZAPINE [Suspect]
     Dosage: UNK
     Dates: start: 20130419, end: 20130614
  2. DIAZEPAM [Concomitant]
     Dosage: UNK
     Dates: start: 20130319, end: 20130426
  3. TRAZODONE HYDROCHLORIDE [Concomitant]
     Dosage: UNK
     Dates: start: 20130319, end: 20130426

REACTIONS (4)
  - Irritability [Recovered/Resolved]
  - Agitation [Recovered/Resolved]
  - Mood swings [Recovered/Resolved]
  - Nightmare [Recovered/Resolved]
